FAERS Safety Report 6182766-6 (Version None)
Quarter: 2009Q2

REPORT INFORMATION
  Report Type: 
  Country: None (occurrence: None)
  Receive Date: 20090505
  Receipt Date: 20090428
  Transmission Date: 20091009
  Serious: Yes (Hospitalization)
  Sender: FDA-Public Use
  Company Number: TCI2009A01526

PATIENT
  Age: 72 Year
  Sex: Female

DRUGS (1)
  1. LANSOPRAZOLE [Suspect]
     Dosage: 15 MG (15 MG, 1 D) PER ORAL
     Route: 048
     Dates: start: 20080601, end: 20081001

REACTIONS (5)
  - CAPILLARY DISORDER [None]
  - ENTEROCOLITIS [None]
  - LARGE INTESTINAL ULCER [None]
  - PEPTIC ULCER [None]
  - SCAR [None]
